FAERS Safety Report 25406912 (Version 1)
Quarter: 2025Q2

REPORT INFORMATION
  Report Type: Report from Study
  Country: CN (occurrence: CN)
  Receive Date: 20250606
  Receipt Date: 20250606
  Transmission Date: 20250716
  Serious: Yes (Other)
  Sender: ROCHE
  Company Number: CN-ROCHE-10000286190

PATIENT
  Age: 64 Year
  Sex: Female
  Weight: 46.3 kg

DRUGS (75)
  1. POLATUZUMAB VEDOTIN [Suspect]
     Active Substance: POLATUZUMAB VEDOTIN
     Indication: Diffuse large B-cell lymphoma
     Route: 042
     Dates: start: 20240831, end: 20240831
  2. POLATUZUMAB VEDOTIN [Suspect]
     Active Substance: POLATUZUMAB VEDOTIN
     Route: 042
     Dates: start: 20241028, end: 20241028
  3. POLATUZUMAB VEDOTIN [Suspect]
     Active Substance: POLATUZUMAB VEDOTIN
     Route: 042
     Dates: start: 20241122, end: 20241122
  4. POLATUZUMAB VEDOTIN [Suspect]
     Active Substance: POLATUZUMAB VEDOTIN
     Route: 042
     Dates: start: 20241220, end: 20241220
  5. ORELABRUTINIB [Suspect]
     Active Substance: ORELABRUTINIB
     Indication: Diffuse large B-cell lymphoma
     Dosage: START DATE :06-JAN-2025
     Route: 048
     Dates: end: 20250112
  6. METHOTREXATE [Suspect]
     Active Substance: METHOTREXATE
     Indication: Diffuse large B-cell lymphoma
     Route: 029
     Dates: start: 20240829, end: 20240829
  7. METHOTREXATE [Suspect]
     Active Substance: METHOTREXATE
     Route: 042
     Dates: start: 20240901, end: 20240901
  8. METHOTREXATE [Suspect]
     Active Substance: METHOTREXATE
     Route: 042
     Dates: start: 20241029, end: 20241029
  9. METHOTREXATE [Suspect]
     Active Substance: METHOTREXATE
     Route: 042
     Dates: start: 20241123, end: 20241123
  10. METHOTREXATE [Suspect]
     Active Substance: METHOTREXATE
     Route: 029
     Dates: start: 20241219, end: 20241219
  11. METHOTREXATE [Suspect]
     Active Substance: METHOTREXATE
     Route: 029
     Dates: start: 20241221, end: 20241221
  12. METHOTREXATE [Suspect]
     Active Substance: METHOTREXATE
     Route: 029
     Dates: start: 20250303, end: 20250303
  13. BETAMETHASONE [Suspect]
     Active Substance: BETAMETHASONE
     Indication: Diffuse large B-cell lymphoma
     Route: 042
     Dates: start: 20240831, end: 20240904
  14. BETAMETHASONE [Suspect]
     Active Substance: BETAMETHASONE
     Route: 042
     Dates: start: 20241028, end: 20241101
  15. BETAMETHASONE [Suspect]
     Active Substance: BETAMETHASONE
     Route: 042
     Dates: start: 20241122, end: 20241126
  16. BETAMETHASONE [Suspect]
     Active Substance: BETAMETHASONE
     Route: 042
     Dates: start: 20241220, end: 20241220
  17. CYCLOPHOSPHAMIDE [Suspect]
     Active Substance: CYCLOPHOSPHAMIDE
     Indication: Diffuse large B-cell lymphoma
     Route: 042
     Dates: start: 20240830, end: 20240830
  18. CYCLOPHOSPHAMIDE [Suspect]
     Active Substance: CYCLOPHOSPHAMIDE
     Route: 042
     Dates: start: 20241028, end: 20241028
  19. CYCLOPHOSPHAMIDE [Suspect]
     Active Substance: CYCLOPHOSPHAMIDE
     Route: 042
     Dates: start: 20241122, end: 20241122
  20. CYCLOPHOSPHAMIDE [Suspect]
     Active Substance: CYCLOPHOSPHAMIDE
     Route: 042
     Dates: start: 20241220, end: 20241220
  21. RITUXIMAB [Suspect]
     Active Substance: RITUXIMAB
     Indication: Diffuse large B-cell lymphoma
     Route: 042
     Dates: start: 20240830, end: 20240830
  22. RITUXIMAB [Suspect]
     Active Substance: RITUXIMAB
     Route: 042
     Dates: start: 20241027, end: 20241027
  23. RITUXIMAB [Suspect]
     Active Substance: RITUXIMAB
     Route: 042
     Dates: start: 20241121, end: 20241121
  24. DOXORUBICIN HYDROCHLORIDE [Suspect]
     Active Substance: DOXORUBICIN HYDROCHLORIDE
     Indication: Diffuse large B-cell lymphoma
     Route: 042
     Dates: start: 20240830, end: 20240830
  25. DOXORUBICIN HYDROCHLORIDE [Suspect]
     Active Substance: DOXORUBICIN HYDROCHLORIDE
     Route: 042
     Dates: start: 20241028, end: 20241028
  26. DOXORUBICIN HYDROCHLORIDE [Suspect]
     Active Substance: DOXORUBICIN HYDROCHLORIDE
     Route: 042
     Dates: start: 20241122, end: 20241122
  27. DOXORUBICIN HYDROCHLORIDE [Suspect]
     Active Substance: DOXORUBICIN HYDROCHLORIDE
     Route: 042
     Dates: start: 20241220, end: 20241220
  28. PREDNISONE [Suspect]
     Active Substance: PREDNISONE
     Indication: Product used for unknown indication
     Route: 065
  29. Acetylcysteine tablets [Concomitant]
     Indication: Productive cough
     Route: 048
     Dates: start: 20240831
  30. RIVAROXABAN [Concomitant]
     Active Substance: RIVAROXABAN
     Route: 048
     Dates: start: 20240904
  31. LEUCOGEN [Concomitant]
     Active Substance: LEUCOGEN
     Route: 048
     Dates: start: 20240905
  32. Cefaclor extended-release tablets [Concomitant]
     Route: 048
     Dates: start: 20240905
  33. Carpofungin [Concomitant]
     Route: 042
     Dates: start: 20241015, end: 20241018
  34. MEROPENEM [Concomitant]
     Active Substance: MEROPENEM
     Route: 042
     Dates: start: 20241015, end: 20241018
  35. ACYCLOVIR SODIUM [Concomitant]
     Active Substance: ACYCLOVIR SODIUM
     Dosage: DRUG DOSE FIRST ADMINISTERED IS 2 TABLET
     Route: 048
     Dates: start: 20241104
  36. Aureomycin eye cream [Concomitant]
     Dosage: DRUG DOSE FIRST ADMINISTERED IS APPROPRIATE AMOUNT UNKNOWN
     Dates: start: 20241104, end: 202412
  37. LACTULOSE [Concomitant]
     Active Substance: LACTULOSE
     Indication: Constipation
     Route: 048
     Dates: start: 20241104, end: 20241109
  38. Pegylated recombinant human granulocyte stimulating factor injection [Concomitant]
     Route: 065
     Dates: start: 20241122
  39. Pegylated recombinant human granulocyte stimulating factor injection [Concomitant]
     Dosage: ROA- IH
     Route: 065
     Dates: start: 20241219, end: 20241219
  40. Pegylated recombinant human granulocyte stimulating factor injection [Concomitant]
     Dosage: ROA- IH
     Route: 065
     Dates: start: 202501, end: 202501
  41. PIPERACILLIN AND TAZOBACTAM [Concomitant]
     Active Substance: PIPERACILLIN SODIUM\TAZOBACTAM SODIUM
     Route: 042
     Dates: start: 20241122, end: 20241129
  42. PIPERACILLIN AND TAZOBACTAM [Concomitant]
     Active Substance: PIPERACILLIN SODIUM\TAZOBACTAM SODIUM
     Route: 042
     Dates: start: 202412, end: 202412
  43. PIPERACILLIN AND TAZOBACTAM [Concomitant]
     Active Substance: PIPERACILLIN SODIUM\TAZOBACTAM SODIUM
     Route: 042
     Dates: start: 202501, end: 202501
  44. RAFUTROMBOPAG OLAMINE [Concomitant]
     Active Substance: RAFUTROMBOPAG OLAMINE
     Route: 048
     Dates: start: 20241107, end: 202411
  45. RAFUTROMBOPAG OLAMINE [Concomitant]
     Active Substance: RAFUTROMBOPAG OLAMINE
     Route: 048
     Dates: start: 202501, end: 202501
  46. CYTARABINE HYDROCHLORIDE [Concomitant]
     Active Substance: CYTARABINE HYDROCHLORIDE
     Route: 029
     Dates: start: 20240829, end: 20240829
  47. CYTARABINE HYDROCHLORIDE [Concomitant]
     Active Substance: CYTARABINE HYDROCHLORIDE
     Route: 029
     Dates: start: 20241219, end: 20241219
  48. CYTARABINE HYDROCHLORIDE [Concomitant]
     Active Substance: CYTARABINE HYDROCHLORIDE
     Route: 029
     Dates: start: 20250303, end: 20250303
  49. DEXAMETHASONE SODIUM PHOSPHATE [Concomitant]
     Active Substance: DEXAMETHASONE SODIUM PHOSPHATE
     Route: 029
     Dates: start: 20240829, end: 20240829
  50. DEXAMETHASONE SODIUM PHOSPHATE [Concomitant]
     Active Substance: DEXAMETHASONE SODIUM PHOSPHATE
     Route: 029
     Dates: start: 20241219, end: 20241219
  51. DEXAMETHASONE SODIUM PHOSPHATE [Concomitant]
     Active Substance: DEXAMETHASONE SODIUM PHOSPHATE
     Route: 029
     Dates: start: 20250303, end: 20250303
  52. HERBALS [Concomitant]
     Active Substance: HERBALS
     Route: 065
     Dates: start: 202501, end: 202501
  53. ZOLPIDEM TARTRATE [Concomitant]
     Active Substance: ZOLPIDEM TARTRATE
     Route: 048
     Dates: start: 20240827, end: 20240911
  54. ZOLPIDEM TARTRATE [Concomitant]
     Active Substance: ZOLPIDEM TARTRATE
     Route: 048
     Dates: start: 20250228, end: 20250303
  55. Paracetamol tramadol tablets [Concomitant]
     Route: 048
     Dates: start: 20240827, end: 20240901
  56. Omeprazole enteric-coated capsules [Concomitant]
     Route: 048
     Dates: start: 20240828, end: 20240829
  57. Omeprazole enteric-coated capsules [Concomitant]
     Route: 048
     Dates: start: 20250303, end: 20250304
  58. Omeprazole enteric-coated capsules [Concomitant]
     Route: 048
     Dates: start: 20250301
  59. METHYLPREDNISOLONE SODIUM SUCCINATE [Concomitant]
     Active Substance: METHYLPREDNISOLONE SODIUM SUCCINATE
     Route: 042
     Dates: start: 20240828, end: 20240830
  60. Glutathione for injection [Concomitant]
     Route: 042
     Dates: start: 20240828, end: 20240904
  61. FEBUXOSTAT [Concomitant]
     Active Substance: FEBUXOSTAT
     Route: 048
     Dates: start: 20240828, end: 20240904
  62. PROMETHAZINE [Concomitant]
     Active Substance: PROMETHAZINE HYDROCHLORIDE
     Route: 030
     Dates: start: 20240830, end: 20240831
  63. Amifostine for injection [Concomitant]
     Route: 042
     Dates: start: 20240831, end: 20240831
  64. Palonosetron hydrochloride capsules [Concomitant]
     Route: 048
     Dates: start: 20240831, end: 20240831
  65. Compound acetaminophen tablets [Concomitant]
     Route: 048
     Dates: start: 20240831, end: 20240831
  66. LEUCOVORIN CALCIUM [Concomitant]
     Active Substance: LEUCOVORIN CALCIUM
     Route: 042
     Dates: start: 20240903, end: 20240903
  67. Diammonium glycyrrhizinate enteric capsule [Concomitant]
     Route: 048
     Dates: start: 20240903, end: 20240904
  68. ENOXAPARIN SODIUM [Concomitant]
     Active Substance: ENOXAPARIN SODIUM
     Dosage: ROA- IH
     Route: 065
     Dates: start: 20240903, end: 20240904
  69. HEPARIN SODIUM [Concomitant]
     Active Substance: HEPARIN SODIUM
     Route: 042
     Dates: start: 20240903, end: 20240903
  70. HEPARIN SODIUM [Concomitant]
     Active Substance: HEPARIN SODIUM
     Route: 042
     Dates: start: 20250303, end: 20250304
  71. ACYCLOVIR SODIUM [Concomitant]
     Active Substance: ACYCLOVIR SODIUM
  72. Ondansetron Hydrochloride Injection [Concomitant]
     Route: 042
     Dates: start: 20250301, end: 20250304
  73. Compound Paracetamol Tablets [Concomitant]
     Route: 048
     Dates: start: 20250228, end: 20250228
  74. Famotidine for Injection [Concomitant]
     Route: 042
     Dates: start: 20250301, end: 20250301
  75. Netupitant and Palonosetron Hydrochloride Capsules [Concomitant]
     Route: 048
     Dates: start: 20250303

REACTIONS (9)
  - Epistaxis [Recovered/Resolved]
  - Urinary tract infection [Not Recovered/Not Resolved]
  - Febrile neutropenia [Recovered/Resolved]
  - Pyrexia [Recovered/Resolved]
  - Drug-induced liver injury [Recovering/Resolving]
  - Oedema peripheral [Recovered/Resolved]
  - Gingival bleeding [Recovered/Resolved]
  - Petechiae [Recovering/Resolving]
  - Ecchymosis [Recovering/Resolving]

NARRATIVE: CASE EVENT DATE: 20240901
